FAERS Safety Report 16647968 (Version 1)
Quarter: 2019Q3

REPORT INFORMATION
  Report Type: Spontaneous
  Country: US (occurrence: US)
  Receive Date: 20190617
  Receipt Date: 20190617
  Transmission Date: 20191004
  Serious: No
  Sender: FDA-Public Use
  Company Number: None

PATIENT
  Age: 66 Year
  Sex: Female

DRUGS (8)
  1. PAROXETINE. [Concomitant]
     Active Substance: PAROXETINE
  2. CALCIUM [Concomitant]
     Active Substance: CALCIUM
  3. URSODIOL. [Concomitant]
     Active Substance: URSODIOL
  4. VITAMIN C [Concomitant]
     Active Substance: ASCORBIC ACID
  5. COQ10 [Concomitant]
     Active Substance: UBIDECARENONE
  6. MAGNESIUM [Concomitant]
     Active Substance: MAGNESIUM
  7. OCALIVA [Suspect]
     Active Substance: OBETICHOLIC ACID
     Indication: PRIMARY BILIARY CHOLANGITIS
     Route: 048
     Dates: start: 20190503
  8. NIFEDIPINE. [Concomitant]
     Active Substance: NIFEDIPINE

REACTIONS (1)
  - Fatigue [None]

NARRATIVE: CASE EVENT DATE: 20190531
